FAERS Safety Report 23803379 (Version 2)
Quarter: 2024Q2

REPORT INFORMATION
  Report Type: Spontaneous
  Country: AU (occurrence: AU)
  Receive Date: 20240501
  Receipt Date: 20240521
  Transmission Date: 20240716
  Serious: Yes (Other)
  Sender: FDA-Public Use
  Company Number: AU-SA-2024SA124833

PATIENT
  Age: 9 Month
  Sex: Female

DRUGS (13)
  1. DEXAMETHASONE [Suspect]
     Active Substance: DEXAMETHASONE
     Indication: Meningitis tuberculous
  2. DEXAMETHASONE [Suspect]
     Active Substance: DEXAMETHASONE
     Dosage: WEANED OVER 8 WEEKS
  3. DEXAMETHASONE [Suspect]
     Active Substance: DEXAMETHASONE
     Dosage: WEANED OVER 4 WEEKS
  4. DEXAMETHASONE [Suspect]
     Active Substance: DEXAMETHASONE
     Dosage: 0.6 MG/KG, QD (HIGH-DOSE)
  5. LINEZOLID [Suspect]
     Active Substance: LINEZOLID
     Indication: Meningitis tuberculous
  6. LINEZOLID [Suspect]
     Active Substance: LINEZOLID
     Dosage: 10 MG/KG, QD
  7. RIFAMPIN [Suspect]
     Active Substance: RIFAMPIN
     Indication: Meningitis tuberculous
     Dosage: 18 MG/KG, QD
  8. ETHAMBUTOL [Suspect]
     Active Substance: ETHAMBUTOL HYDROCHLORIDE
     Indication: Meningitis tuberculous
  9. ISONIAZID [Suspect]
     Active Substance: ISONIAZID
     Indication: Meningitis tuberculous
     Dosage: 20 MG/KG, QD
  10. PYRAZINAMIDE [Suspect]
     Active Substance: PYRAZINAMIDE
     Indication: Meningitis tuberculous
     Dosage: 30 MG/KG, QD
  11. MOXIFLOXACIN HYDROCHLORIDE [Suspect]
     Active Substance: MOXIFLOXACIN HYDROCHLORIDE\MOXIFLOXACIN HYDROCHLORIDE MONOHYDRATE
     Indication: Meningitis tuberculous
     Dosage: 15 MG/KG, QD
  12. MOXIFLOXACIN HYDROCHLORIDE [Suspect]
     Active Substance: MOXIFLOXACIN HYDROCHLORIDE\MOXIFLOXACIN HYDROCHLORIDE MONOHYDRATE
     Dosage: UNK
  13. PROTIONAMIDE [Suspect]
     Active Substance: PROTIONAMIDE
     Indication: Meningitis tuberculous
     Dosage: 20 MG/KG

REACTIONS (5)
  - Paradoxical drug reaction [Recovering/Resolving]
  - Vomiting [Recovering/Resolving]
  - Lethargy [Recovering/Resolving]
  - Ataxia [Recovering/Resolving]
  - Torticollis [Recovering/Resolving]
